FAERS Safety Report 9169670 (Version 2)
Quarter: 2013Q2

REPORT INFORMATION
  Report Type: Spontaneous
  Country: US (occurrence: US)
  Receive Date: 20130318
  Receipt Date: 20130425
  Transmission Date: 20140414
  Serious: Yes (Hospitalization, Other)
  Sender: FDA-Public Use
  Company Number: US-009507513-1303USA006763

PATIENT
  Age: 79 Year
  Sex: Female

DRUGS (5)
  1. REMERON [Suspect]
     Dosage: 30 MG, QD
     Route: 048
  2. REMERON [Suspect]
     Dosage: 45 MG, QD
     Route: 048
  3. DONEPEZIL HYDROCHLORIDE [Suspect]
     Dosage: 5 MG, QD
  4. DONEPEZIL HYDROCHLORIDE [Suspect]
     Dosage: 10 MG, QD
  5. ESZOPICLONE [Suspect]
     Dosage: 2 MG

REACTIONS (1)
  - Encephalopathy [Recovered/Resolved]
